FAERS Safety Report 5873282-7 (Version None)
Quarter: 2008Q3

REPORT INFORMATION
  Report Type: 
  Country: None (occurrence: None)
  Receive Date: 20080904
  Receipt Date: 20070222
  Transmission Date: 20090109
  Serious: Yes (Other)
  Sender: FDA-Public Use
  Company Number: 2007-00199FE

PATIENT
  Age: 25 Year
  Sex: Female

DRUGS (2)
  1. LUTRELEF (LUTRELEF) (GONADORELIN ACETATE) [Suspect]
     Dates: end: 20061201
  2. LUTRELEF (LUTRELEF) (GONADORELIN ACETATE) [Suspect]
     Dates: start: 20070101, end: 20070101

REACTIONS (5)
  - ANAPHYLACTIC REACTION [None]
  - HYPOTENSION [None]
  - INJECTION SITE ABSCESS [None]
  - INJECTION SITE REACTION [None]
  - VOMITING [None]
